FAERS Safety Report 24269534 (Version 1)
Quarter: 2024Q3

REPORT INFORMATION
  Report Type: Report from Study
  Country: US (occurrence: None)
  Receive Date: 20240830
  Receipt Date: 20240830
  Transmission Date: 20241017
  Serious: Yes (Hospitalization)
  Sender: ASTRAZENECA
  Company Number: 2024A193506

PATIENT
  Sex: Male

DRUGS (1)
  1. FARXIGA [Suspect]
     Active Substance: DAPAGLIFLOZIN PROPANEDIOL
     Route: 048

REACTIONS (7)
  - Chronic kidney disease [Unknown]
  - Sleep apnoea syndrome [Unknown]
  - Cerebrovascular accident [Unknown]
  - Pancreatitis [Unknown]
  - Lung neoplasm malignant [Unknown]
  - Blood pressure increased [Unknown]
  - Diabetes mellitus [Unknown]
